FAERS Safety Report 6385474-1 (Version None)
Quarter: 2009Q4

REPORT INFORMATION
  Report Type: 
  Country: None (occurrence: None)
  Receive Date: 20091002
  Receipt Date: 20081105
  Transmission Date: 20100525
  Serious: No
  Sender: FDA-Public Use
  Company Number: US-ASTRAZENECA-2008UW18920

PATIENT
  Age: 65 Year
  Sex: Female
  Weight: 122.5 kg

DRUGS (5)
  1. ARIMIDEX [Suspect]
     Route: 048
  2. TAXOTERE [Suspect]
     Route: 017
  3. FISH OIL [Concomitant]
  4. VITAMINS [Concomitant]
  5. LISINOPRIL W/ HCTZ [Concomitant]

REACTIONS (11)
  - ABDOMINAL PAIN [None]
  - ARTHRALGIA [None]
  - BLOOD PRESSURE DECREASED [None]
  - BREAST TENDERNESS [None]
  - CHEST PAIN [None]
  - EPISTAXIS [None]
  - FEELING HOT [None]
  - NAUSEA [None]
  - NERVOUSNESS [None]
  - PRURITUS [None]
  - RENAL PAIN [None]
